FAERS Safety Report 23803330 (Version 1)
Quarter: 2024Q2

REPORT INFORMATION
  Report Type: Spontaneous
  Country: US (occurrence: None)
  Receive Date: 20240501
  Receipt Date: 20240501
  Transmission Date: 20240716
  Serious: Yes (Other)
  Sender: FDA-Public Use
  Company Number: None

PATIENT
  Age: 51 Year
  Sex: Female
  Weight: 101.25 kg

DRUGS (6)
  1. QSYMIA [Suspect]
     Active Substance: PHENTERMINE HYDROCHLORIDE\TOPIRAMATE
     Indication: Weight decreased
     Dosage: OTHER QUANTITY : 1 CAPSULE(S);?
     Route: 048
     Dates: start: 20231015, end: 20240202
  2. VITAMINS [Concomitant]
     Active Substance: VITAMINS
  3. MULTI [Concomitant]
  4. VITAMIN D [Concomitant]
     Active Substance: VITAMIN D NOS
  5. CALCIUM [Concomitant]
     Active Substance: CALCIUM
  6. BIOTIN [Concomitant]
     Active Substance: BIOTIN

REACTIONS (6)
  - Blindness [None]
  - Optic neuritis [None]
  - Photokeratitis [None]
  - Product label issue [None]
  - Insurance issue [None]
  - Eye injury [None]

NARRATIVE: CASE EVENT DATE: 20240102
